FAERS Safety Report 6554848-8 (Version None)
Quarter: 2010Q1

REPORT INFORMATION
  Report Type: 
  Country: None (occurrence: None)
  Receive Date: 20100125
  Receipt Date: 20100108
  Transmission Date: 20100710
  Serious: Yes (Other)
  Sender: FDA-Public Use
  Company Number: AUR-APL-2010-00077

PATIENT
  Age: 31 Week

DRUGS (3)
  1. FLUOXETINE [Suspect]
     Indication: DEPRESSION
     Dosage: 20MG, DAILY, TRANSPLACENT
     Route: 064
     Dates: start: 20091127, end: 20091129
  2. AMOXICILLIN [Concomitant]
  3. LACTULOSE [Concomitant]

REACTIONS (2)
  - FOETAL HYPOKINESIA [None]
  - MATERNAL DRUGS AFFECTING FOETUS [None]
